FAERS Safety Report 7035566-9 (Version None)
Quarter: 2010Q4

REPORT INFORMATION
  Report Type: 
  Country: None (occurrence: None)
  Receive Date: 20101008
  Receipt Date: 20100930
  Transmission Date: 20110411
  Serious: No
  Sender: FDA-Public Use
  Company Number: US-B.I. PHARMACEUTICALS,INC./RIDGEFIELD-2010-BP-09925BP

PATIENT
  Sex: Female

DRUGS (5)
  1. SPIRIVA [Suspect]
     Indication: CHRONIC OBSTRUCTIVE PULMONARY DISEASE
     Dosage: 18 MCG
     Route: 055
     Dates: start: 20090801
  2. ADVAIR DISKUS 100/50 [Concomitant]
     Indication: CHRONIC OBSTRUCTIVE PULMONARY DISEASE
  3. GENERIC DIURETIC [Concomitant]
     Indication: HYPERTENSION
  4. BETA BLOCKER [Concomitant]
     Indication: HYPERTENSION
  5. DIOVAN [Concomitant]
     Indication: HYPERTENSION

REACTIONS (2)
  - ASTHENIA [None]
  - DYSPNOEA [None]
